FAERS Safety Report 9432136 (Version 2)
Quarter: 2013Q3

REPORT INFORMATION
  Report Type: Spontaneous
  Country: US (occurrence: US)
  Receive Date: 20130731
  Receipt Date: 20130812
  Transmission Date: 20140515
  Serious: No
  Sender: FDA-Public Use
  Company Number: US-PFIZER INC-2013221531

PATIENT
  Age: 86 Year
  Sex: Male
  Weight: 62.59 kg

DRUGS (2)
  1. VIAGRA [Suspect]
     Indication: ERECTILE DYSFUNCTION
     Dosage: 25 MG (BY CUTTING 50MG TABLET INTO HALF), AS NEEDED
     Route: 048
     Dates: start: 201307
  2. PREVACID [Concomitant]
     Dosage: UNK

REACTIONS (1)
  - Drug ineffective [Unknown]
